FAERS Safety Report 6502909-1 (Version None)
Quarter: 2009Q4

REPORT INFORMATION
  Report Type: 
  Country: None (occurrence: None)
  Receive Date: 20091217
  Receipt Date: 20091211
  Transmission Date: 20100525
  Serious: Yes (Disabling, Other)
  Sender: FDA-Public Use
  Company Number: GB-ASTRAZENECA-2009SE31402

PATIENT
  Age: 45 Year
  Sex: Female

DRUGS (4)
  1. QUETIAPINE FUMARATE [Suspect]
     Indication: HYPOMANIA
     Route: 048
     Dates: start: 20091020, end: 20091103
  2. OLANZAPINE [Concomitant]
  3. RISPERIDONE [Concomitant]
  4. ZOPICLONE [Concomitant]

REACTIONS (3)
  - CATATONIA [None]
  - CONFUSIONAL STATE [None]
  - DISORIENTATION [None]
